FAERS Safety Report 8808751 (Version 1)
Quarter: 2012Q4

REPORT INFORMATION
  Report Type: 
  Country: US (occurrence: US)
  Receive Date: 20120926
  Receipt Date: 20120926
  Transmission Date: 20130627
  Serious: Yes (Other)
  Sender: FDA-Public Use
  Company Number: US-JNJFOC-20120906569

PATIENT
  Age: 64 Year
  Sex: Male

DRUGS (1)
  1. NICOTINE [Suspect]
     Indication: PRODUCT USED FOR UNKNOWN INDICATION
     Dosage: over a period of 2 years
     Route: 048

REACTIONS (4)
  - Nicotine dependence [Unknown]
  - Cholinergic syndrome [Unknown]
  - Intentional drug misuse [Unknown]
  - Drug administration error [Unknown]
